FAERS Safety Report 6433503-9 (Version None)
Quarter: 2009Q4

REPORT INFORMATION
  Report Type: 
  Country: None (occurrence: None)
  Receive Date: 20091106
  Receipt Date: 20091106
  Transmission Date: 20100525
  Serious: Yes (Hospitalization)
  Sender: FDA-Public Use
  Company Number: None

PATIENT
  Age: 61 Year
  Sex: Female
  Weight: 80.4 kg

DRUGS (1)
  1. SULFASALAZINE [Suspect]
     Indication: COLITIS ULCERATIVE
     Dosage: 1000 MG QID PO
     Route: 048
     Dates: start: 20090601, end: 20090722

REACTIONS (3)
  - ABSCESS NECK [None]
  - BLOOD CULTURE POSITIVE [None]
  - NEUTROPENIA [None]
